FAERS Safety Report 17850515 (Version 1)
Quarter: 2020Q2

REPORT INFORMATION
  Report Type: Spontaneous
  Country: US (occurrence: US)
  Receive Date: 20200602
  Receipt Date: 20200602
  Transmission Date: 20200714
  Serious: No
  Sender: FDA-Public Use
  Company Number: US-BRECKENRIDGE PHARMACEUTICAL, INC.-2085361

PATIENT
  Sex: Male

DRUGS (7)
  1. LYRICA [Concomitant]
     Active Substance: PREGABALIN
  2. SIMVASTATIN. [Concomitant]
     Active Substance: SIMVASTATIN
  3. BUPROPION HYDROCHLORIDE XL [Concomitant]
     Active Substance: BUPROPION HYDROCHLORIDE
  4. OMEPRAZOLE. [Concomitant]
     Active Substance: OMEPRAZOLE
  5. ALPRAZOLAM. [Suspect]
     Active Substance: ALPRAZOLAM
     Indication: ANXIETY
     Route: 048
  6. DULOXETINE. [Concomitant]
     Active Substance: DULOXETINE
  7. ASMANEX HFA [Concomitant]
     Active Substance: MOMETASONE FUROATE

REACTIONS (1)
  - Pain [None]
